FAERS Safety Report 6097641-5 (Version None)
Quarter: 2009Q1

REPORT INFORMATION
  Report Type: 
  Country: None (occurrence: None)
  Receive Date: 20090225
  Receipt Date: 20090225
  Transmission Date: 20090719
  Serious: Yes (Hospitalization)
  Sender: FDA-Public Use
  Company Number: None

PATIENT
  Age: 45 Year
  Sex: Female
  Weight: 61.2356 kg

DRUGS (4)
  1. LEVAQUIN [Suspect]
     Indication: PNEUMONIA
     Dosage: ONE TABLET DAILY PO
     Route: 048
     Dates: start: 20081118, end: 20081122
  2. LEVAQUIN [Suspect]
     Indication: UPPER RESPIRATORY TRACT INFECTION
     Dosage: ONE TABLET DAILY PO
     Route: 048
     Dates: start: 20081118, end: 20081122
  3. TYLENOL [Concomitant]
  4. IBUPROFEN [Concomitant]

REACTIONS (6)
  - ARTHRALGIA [None]
  - DIZZINESS [None]
  - HEADACHE [None]
  - MOVEMENT DISORDER [None]
  - NAUSEA [None]
  - NECK PAIN [None]
